FAERS Safety Report 18832994 (Version 1)
Quarter: 2021Q1

REPORT INFORMATION
  Report Type: Report from Study
  Country: US (occurrence: US)
  Receive Date: 20210203
  Receipt Date: 20210203
  Transmission Date: 20210419
  Serious: No
  Sender: FDA-Public Use
  Company Number: NVSC2021US016106

PATIENT
  Sex: Male

DRUGS (1)
  1. COSENTYX [Suspect]
     Active Substance: SECUKINUMAB
     Indication: PSORIASIS
     Dosage: 300 MG, Q4W, BENEATH THE SKIN, USUALLY VIA SKIN
     Route: 058

REACTIONS (3)
  - Product dose omission issue [Unknown]
  - Skin plaque [Unknown]
  - Arthralgia [Recovered/Resolved]
